FAERS Safety Report 23039477 (Version 2)
Quarter: 2023Q4

REPORT INFORMATION
  Report Type: Spontaneous
  Country: BR (occurrence: BR)
  Receive Date: 20231006
  Receipt Date: 20231016
  Transmission Date: 20240110
  Serious: Yes (Hospitalization)
  Sender: FDA-Public Use
  Company Number: BR-BIOMARINAP-BR-2023-153160

PATIENT

DRUGS (1)
  1. VIMIZIM [Suspect]
     Active Substance: ELOSULFASE ALFA
     Indication: Mucopolysaccharidosis IV
     Dosage: 2 MILLIGRAM/KILOGRAM, QW
     Route: 042
     Dates: start: 20141113

REACTIONS (4)
  - Cardiac failure congestive [Recovered/Resolved]
  - Dyspnoea [Recovered/Resolved]
  - Orthopnoea [Recovered/Resolved]
  - Aortic stenosis [Recovered/Resolved]

NARRATIVE: CASE EVENT DATE: 20221020
